FAERS Safety Report 9747453 (Version 2)
Quarter: 2013Q4

REPORT INFORMATION
  Report Type: Spontaneous
  Country: US (occurrence: US)
  Receive Date: 20131212
  Receipt Date: 20131223
  Transmission Date: 20140711
  Serious: Yes (Hospitalization)
  Sender: FDA-Public Use
  Company Number: US-BIOGENIDEC-2013BI117238

PATIENT
  Age: 50 Year
  Sex: Female

DRUGS (20)
  1. TECFIDERA [Suspect]
     Indication: MULTIPLE SCLEROSIS
     Route: 048
     Dates: start: 201305
  2. TECFIDERA [Suspect]
     Indication: MULTIPLE SCLEROSIS
     Route: 048
     Dates: start: 201305
  3. ASPIRIN [Concomitant]
  4. CARBAMAZEPINE [Concomitant]
  5. CEFADROXIL [Concomitant]
  6. DOXAZOSIN MESYLATE [Concomitant]
  7. GABAPENTIN [Concomitant]
  8. LANTUS [Concomitant]
  9. METHENAMINE MANDELATE [Concomitant]
  10. NOVOLOG [Concomitant]
  11. SANCTURA XR [Concomitant]
  12. SERTRALINE HCL [Concomitant]
  13. SIMVASTATIN [Concomitant]
  14. SPIRONOLACTONE [Concomitant]
  15. TIZANIDINE HCL [Concomitant]
  16. VALACYCLOVIR HCL [Concomitant]
  17. WELLBUTRIN SR [Concomitant]
  18. VITAMIN D3 [Concomitant]
  19. BACLOFEN [Concomitant]
  20. BOTOX INJECTION [Concomitant]

REACTIONS (2)
  - Femur fracture [Not Recovered/Not Resolved]
  - Fall [Recovered/Resolved]
